FAERS Safety Report 8872834 (Version 1)
Quarter: 2012Q4

REPORT INFORMATION
  Report Type: 
  Country: US (occurrence: US)
  Receive Date: 20121026
  Receipt Date: 20121026
  Transmission Date: 20130627
  Serious: No
  Sender: FDA-Public Use
  Company Number: US-AMGEN-USASP2012051146

PATIENT
  Sex: Male

DRUGS (7)
  1. ENBREL [Suspect]
     Indication: PRODUCT USED FOR UNKNOWN INDICATION
     Dosage: 25 mg, 2 times/wk
     Route: 058
  2. LIPITOR [Concomitant]
     Dosage: 10 mg, UNK
  3. METOPROLOL [Concomitant]
     Dosage: 25 mg, UNK
  4. ZESTRIL [Concomitant]
     Dosage: 5 mg, UNK
  5. ASPIRIN [Concomitant]
     Dosage: 81 mg, UNK
  6. OMEGA 3 FISH OIL [Concomitant]
     Dosage: UNK
  7. CENTRUM SILVER                     /02363801/ [Concomitant]
     Dosage: UNK

REACTIONS (2)
  - Productive cough [Unknown]
  - Injection site bruising [Unknown]
